FAERS Safety Report 14471703 (Version 2)
Quarter: 2018Q3

REPORT INFORMATION
  Report Type: Spontaneous
  Country: US (occurrence: US)
  Receive Date: 20180131
  Receipt Date: 20180718
  Transmission Date: 20181010
  Serious: Yes (Hospitalization)
  Sender: FDA-Public Use
  Company Number: US-DSJP-DSU-2017-137680

PATIENT

DRUGS (1)
  1. BENICAR [Suspect]
     Active Substance: OLMESARTAN MEDOXOMIL
     Indication: PRODUCT USED FOR UNKNOWN INDICATION
     Dosage: 20 MG, QD
     Route: 048
     Dates: start: 20140210, end: 20140721

REACTIONS (3)
  - Sprue-like enteropathy [Recovering/Resolving]
  - Pseudomembranous colitis [Recovering/Resolving]
  - Diverticulum [Unknown]

NARRATIVE: CASE EVENT DATE: 20140716
